FAERS Safety Report 9372018 (Version 1)
Quarter: 2013Q2

REPORT INFORMATION
  Report Type: Report from Study
  Country: US (occurrence: US)
  Receive Date: 20130627
  Receipt Date: 20130627
  Transmission Date: 20140414
  Serious: Yes (Other)
  Sender: FDA-Public Use
  Company Number: US-MYLANLABS-2012S1012829

PATIENT
  Age: 51 Year
  Sex: Male
  Weight: 90.27 kg

DRUGS (8)
  1. CLOZAPINE TABLETS [Suspect]
     Indication: SCHIZOPHRENIA
     Route: 048
     Dates: start: 2009, end: 20120619
  2. CLOZAPINE TABLETS [Suspect]
     Indication: SCHIZOPHRENIA
     Route: 048
     Dates: start: 20120621
  3. CLOZAPINE TABLETS [Suspect]
     Indication: SCHIZOPHRENIA
     Route: 048
     Dates: start: 2009, end: 20120619
  4. CLOZAPINE TABLETS [Suspect]
     Indication: SCHIZOPHRENIA
     Route: 048
     Dates: start: 20120621
  5. COGENTIN [Concomitant]
     Route: 048
  6. CITALOPRAM [Concomitant]
     Route: 048
  7. DEPOKOTE [Concomitant]
     Dosage: ER
  8. LORAZEPAM [Concomitant]

REACTIONS (1)
  - Granulocytopenia [Recovered/Resolved]
